FAERS Safety Report 7764909-3 (Version None)
Quarter: 2011Q3

REPORT INFORMATION
  Report Type: 
  Country: None (occurrence: None)
  Receive Date: 20110921
  Receipt Date: 20110914
  Transmission Date: 20111222
  Serious: Yes (Hospitalization)
  Sender: FDA-Public Use
  Company Number: FR-BAXTER-2011BH023100

PATIENT
  Age: 59 Year
  Sex: Male

DRUGS (8)
  1. MESNA [Concomitant]
     Indication: SARCOMA
     Route: 042
     Dates: start: 20110627, end: 20110629
  2. SOLU-MEDROL [Concomitant]
     Indication: SARCOMA
     Route: 042
     Dates: start: 20110627, end: 20110629
  3. DOXORUBICIN HCL [Concomitant]
     Indication: SARCOMA
     Route: 042
     Dates: start: 20110627, end: 20110629
  4. LYRICA [Concomitant]
     Indication: PRODUCT USED FOR UNKNOWN INDICATION
     Route: 065
  5. ZOFRAN [Concomitant]
     Indication: SARCOMA
     Route: 042
     Dates: start: 20110627, end: 20110629
  6. IFOSFAMIDE [Suspect]
     Indication: SARCOMA
     Route: 042
     Dates: start: 20110627, end: 20110628
  7. TRAMADOL HCL [Concomitant]
     Indication: PRODUCT USED FOR UNKNOWN INDICATION
     Route: 065
  8. ACETAMINOPHEN [Concomitant]
     Indication: PRODUCT USED FOR UNKNOWN INDICATION
     Route: 065

REACTIONS (3)
  - ALTERED STATE OF CONSCIOUSNESS [None]
  - RESPIRATORY DISTRESS [None]
  - TOXIC ENCEPHALOPATHY [None]
